FAERS Safety Report 7150172-3 (Version None)
Quarter: 2010Q4

REPORT INFORMATION
  Report Type: 
  Country: None (occurrence: None)
  Receive Date: 20101210
  Receipt Date: 20101201
  Transmission Date: 20110411
  Serious: Yes (Hospitalization)
  Sender: FDA-Public Use
  Company Number: HU-BRISTOL-MYERS SQUIBB COMPANY-15357635

PATIENT
  Age: 48 Year
  Sex: Male

DRUGS (2)
  1. ARIPIPRAZOLE [Suspect]
     Indication: SCHIZOPHRENIA
     Dosage: 15JUL10 30MG ORAL LAST DOSE:22SEP10
     Route: 048
     Dates: start: 20100603, end: 20100922
  2. ALPRAZOLAM [Concomitant]
     Dates: start: 20060101

REACTIONS (1)
  - PSYCHOTIC DISORDER [None]
